FAERS Safety Report 5883184-8 (Version None)
Quarter: 2008Q3

REPORT INFORMATION
  Report Type: 
  Country: None (occurrence: None)
  Receive Date: 20080915
  Receipt Date: 20080802
  Transmission Date: 20090109
  Serious: Yes (Other)
  Sender: FDA-Public Use
  Company Number: PHHY2008BR20683

PATIENT
  Age: 7 Year
  Sex: Female
  Weight: 28 kg

DRUGS (6)
  1. TRILEPTAL [Suspect]
     Indication: EPILEPSY
     Dosage: 2.5 ML IN THE MORNING AND 2.5 ML AT NIGHT
     Route: 048
     Dates: start: 20080617
  2. TRILEPTAL [Suspect]
     Dosage: 3.5 ML IN THE MORNING AND 3.5 ML AT NIGHT
     Route: 048
  3. TRILEPTAL [Suspect]
     Dosage: 4 ML, BID
     Route: 048
  4. PHENOBARBITAL TAB [Concomitant]
     Dosage: 120 DROPS DAILY
  5. PHENOBARBITAL TAB [Concomitant]
     Dosage: 100 DROPS
  6. PHENOBARBITAL TAB [Concomitant]
     Dosage: 80 DROPS

REACTIONS (7)
  - CHEILITIS [None]
  - CONVULSION [None]
  - DYSPHEMIA [None]
  - DYSPHONIA [None]
  - RESPIRATION ABNORMAL [None]
  - SKIN EXFOLIATION [None]
  - SNORING [None]
